FAERS Safety Report 17008773 (Version 2)
Quarter: 2020Q1

REPORT INFORMATION
  Report Type: Spontaneous
  Country: US (occurrence: US)
  Receive Date: 20191108
  Receipt Date: 20200120
  Transmission Date: 20200409
  Serious: Yes (Death, Life-Threatening, Hospitalization)
  Sender: FDA-Public Use
  Company Number: US-009507513-1910USA017322

PATIENT
  Sex: Female

DRUGS (1)
  1. ZINPLAVA [Suspect]
     Active Substance: BEZLOTOXUMAB
     Dosage: ONE DOSE
     Dates: start: 20191016

REACTIONS (2)
  - Chronic disease [Fatal]
  - Adverse event [Unknown]

NARRATIVE: CASE EVENT DATE: 201910
